FAERS Safety Report 8859568 (Version 1)
Quarter: 2012Q4

REPORT INFORMATION
  Report Type: 
  Country: US (occurrence: US)
  Receive Date: 20121025
  Receipt Date: 20121025
  Transmission Date: 20130627
  Serious: No
  Sender: FDA-Public Use
  Company Number: US-ASTRAZENECA-2012SE79117

PATIENT
  Age: 53 Year
  Sex: Female

DRUGS (10)
  1. NEXIUM [Suspect]
     Route: 048
     Dates: start: 20111013
  2. SYMBICORT PMDI [Suspect]
     Dosage: 80 MCG-4.5 MCG/INH 2 PUFFS 2 TIMES PER DAY
     Route: 055
     Dates: start: 20111013
  3. LISINOPRIL [Suspect]
     Route: 048
     Dates: start: 20120927
  4. ASPIRIN [Suspect]
     Route: 048
     Dates: start: 20111128
  5. PROAIR [Concomitant]
  6. SPIRIVA [Concomitant]
  7. ZITHROMAX [Concomitant]
  8. FLONASE [Concomitant]
  9. PRAVASTATIN [Concomitant]
  10. ALBUTEROL [Concomitant]

REACTIONS (5)
  - Acute sinusitis [Unknown]
  - Vaginal discharge [Unknown]
  - Type V hyperlipidaemia [Unknown]
  - Dyspepsia [Unknown]
  - Chest pain [Unknown]
